FAERS Safety Report 14999613 (Version 1)
Quarter: 2018Q3

REPORT INFORMATION
  Report Type: Spontaneous
  Country: US (occurrence: US)
  Receive Date: 20180612
  Receipt Date: 20180612
  Transmission Date: 20181010
  Serious: No
  Sender: FDA-Public Use
  Company Number: US-TEVA-2018-US-901826

PATIENT
  Sex: Female

DRUGS (1)
  1. POTASSIUM CITRATE ER [Suspect]
     Active Substance: POTASSIUM CITRATE

REACTIONS (2)
  - Abdominal discomfort [Unknown]
  - Product substitution issue [None]
